FAERS Safety Report 6812243-8 (Version None)
Quarter: 2010Q2

REPORT INFORMATION
  Report Type: 
  Country: None (occurrence: None)
  Receive Date: 20100628
  Receipt Date: 20100617
  Transmission Date: 20101027
  Serious: Yes (Hospitalization, Other)
  Sender: FDA-Public Use
  Company Number: 014169

PATIENT
  Age: 20 Year
  Sex: Female

DRUGS (3)
  1. LEVETIRACETAM [Suspect]
     Dosage: (3000 MG)
  2. VALPROIC ACID [Concomitant]
  3. LAMOTRIGINE [Concomitant]

REACTIONS (14)
  - ARRHYTHMIA [None]
  - DYSKINESIA [None]
  - HYPERTHERMIA [None]
  - ILEUS PARALYTIC [None]
  - INCREASED BRONCHIAL SECRETION [None]
  - MYOPATHY [None]
  - NERVOUS SYSTEM DISORDER [None]
  - NEUROTOXICITY [None]
  - NYSTAGMUS [None]
  - PARESIS [None]
  - PNEUMONIA STAPHYLOCOCCAL [None]
  - STATUS EPILEPTICUS [None]
  - TACHYCARDIA [None]
  - TONIC CONVULSION [None]
